FAERS Safety Report 9423650 (Version 2)
Quarter: 2013Q3

REPORT INFORMATION
  Report Type: Report from Study
  Country: ZA (occurrence: ZA)
  Receive Date: 20130726
  Receipt Date: 20130809
  Transmission Date: 20140515
  Serious: Yes (Death)
  Sender: FDA-Public Use
  Company Number: ZA-ABBOTT-13P-163-1125358-00

PATIENT
  Age: 7 Month
  Sex: Male
  Weight: 6.8 kg

DRUGS (6)
  1. KALETRA [Suspect]
     Indication: HIV INFECTION
     Route: 048
     Dates: start: 20120817, end: 20130202
  2. ABACAVIR [Concomitant]
     Indication: HIV INFECTION
     Route: 048
     Dates: end: 20130202
  3. LAMIVUDINE [Concomitant]
     Indication: HIV INFECTION
     Route: 048
     Dates: end: 20130202
  4. BACTRIM [Concomitant]
     Indication: ANTIFUNGAL PROPHYLAXIS
     Route: 048
     Dates: end: 20130202
  5. BACTRIM [Concomitant]
     Indication: ANTIFUNGAL PROPHYLAXIS
  6. NALIDIXIC ACID [Concomitant]
     Indication: GASTROENTERITIS
     Route: 048
     Dates: end: 20130123

REACTIONS (2)
  - Septic shock [Fatal]
  - Pneumonia [Fatal]
